FAERS Safety Report 5937662-3 (Version None)
Quarter: 2008Q4

REPORT INFORMATION
  Report Type: 
  Country: None (occurrence: None)
  Receive Date: 20081029
  Receipt Date: 20081023
  Transmission Date: 20090506
  Serious: Yes (Death, Hospitalization)
  Sender: FDA-Public Use
  Company Number: 2008-04017

PATIENT
  Age: 73 Year
  Sex: Female

DRUGS (5)
  1. VELCADE [Suspect]
     Dosage: 2.2 MG, INTRAVENOUS, 1.6 MG, INTRAVENOUS
     Route: 042
     Dates: start: 20071105, end: 20071224
  2. VELCADE [Suspect]
     Dosage: 2.2 MG, INTRAVENOUS, 1.6 MG, INTRAVENOUS
     Route: 042
     Dates: start: 20080204, end: 20080519
  3. CNT0328(CNT0328) VIAL [Suspect]
     Indication: MULTIPLE MYELOMA
     Dosage: 250 MG, INTRAVENOUS
     Route: 042
     Dates: start: 20071105, end: 20080609
  4. PLACEBO [Suspect]
     Indication: MULTIPLE MYELOMA
     Dosage: 250 MG, INTRAVENOUS
     Route: 042
     Dates: start: 20071105, end: 20080609
  5. DEXAMETHASONE TAB [Suspect]
     Indication: DRUG USE FOR UNKNOWN INDICATION
     Dosage: ORAL
     Route: 048

REACTIONS (2)
  - CHOLECYSTITIS [None]
  - PANCREATITIS ACUTE [None]
